FAERS Safety Report 13085565 (Version 1)
Quarter: 2017Q1

REPORT INFORMATION
  Report Type: Spontaneous
  Country: US (occurrence: US)
  Receive Date: 20170103
  Receipt Date: 20170103
  Transmission Date: 20170428
  Serious: Yes (Disabling, Other)
  Sender: FDA-Public Use
  Company Number: None

PATIENT
  Age: 42 Year
  Sex: Female
  Weight: 72 kg

DRUGS (1)
  1. TERCONAZOLE VAGINAL CREAM 0.4% TARO PHARMACEUTICALS [Suspect]
     Active Substance: TERCONAZOLE
     Indication: FUNGAL INFECTION
     Dosage: 6 APPLICATORFUL AT BEDTIME VAGINAL?
     Route: 067
     Dates: start: 20161227, end: 20170102

REACTIONS (6)
  - Headache [None]
  - Fatigue [None]
  - Muscle spasms [None]
  - Vaginal haemorrhage [None]
  - Gait disturbance [None]
  - Back pain [None]

NARRATIVE: CASE EVENT DATE: 20161228
